FAERS Safety Report 5597556-2 (Version None)
Quarter: 2008Q1

REPORT INFORMATION
  Report Type: 
  Country: None (occurrence: None)
  Receive Date: 20080121
  Receipt Date: 20080118
  Transmission Date: 20080703
  Serious: No
  Sender: FDA-Public Use
  Company Number: A0604440A

PATIENT

DRUGS (2)
  1. COMBIVIR [Suspect]
     Indication: HIV INFECTION
     Dosage: 900MG PER DAY
     Dates: start: 20060203
  2. NELFINAVIR [Suspect]
     Indication: HIV INFECTION
     Dosage: 2500MG PER DAY
     Dates: start: 20060203

REACTIONS (5)
  - DRUG EXPOSURE DURING PREGNANCY [None]
  - ECHOCARDIOGRAM ABNORMAL [None]
  - NORMAL NEWBORN [None]
  - ULTRASOUND ANTENATAL SCREEN [None]
  - ULTRASOUND SCAN ABNORMAL [None]
